FAERS Safety Report 20170666 (Version 1)
Quarter: 2021Q4

REPORT INFORMATION
  Report Type: Spontaneous
  Country: US (occurrence: None)
  Receive Date: 20211210
  Receipt Date: 20211210
  Transmission Date: 20220303
  Serious: Yes (Hospitalization)
  Sender: FDA-Public Use
  Company Number: None

PATIENT
  Age: 57 Year
  Sex: Female
  Weight: 88 kg

DRUGS (3)
  1. TAXOTERE [Suspect]
     Active Substance: DOCETAXEL
     Dates: end: 20211119
  2. PERTUZUMAB [Suspect]
     Active Substance: PERTUZUMAB
     Dates: end: 20211119
  3. HERCEPTIN [Suspect]
     Active Substance: TRASTUZUMAB
     Dates: end: 20211119

REACTIONS (14)
  - Peripheral swelling [None]
  - Pain in extremity [None]
  - Dysuria [None]
  - Pollakiuria [None]
  - Dyspnoea [None]
  - Tachycardia [None]
  - Haematuria [None]
  - White blood cells urine positive [None]
  - Bacterial test positive [None]
  - Oedema [None]
  - Sepsis [None]
  - Urinary tract infection [None]
  - Cardiac failure congestive [None]
  - Haemoglobin decreased [None]

NARRATIVE: CASE EVENT DATE: 20211128
